FAERS Safety Report 18077598 (Version 1)
Quarter: 2020Q3

REPORT INFORMATION
  Report Type: Spontaneous
  Country: US (occurrence: US)
  Receive Date: 20200728
  Receipt Date: 20200728
  Transmission Date: 20201103
  Serious: Yes (Disabling, Other)
  Sender: FDA-Public Use
  Company Number: US-SA-2020SA188669

PATIENT

DRUGS (2)
  1. ZANTAC 75 [Suspect]
     Active Substance: RANITIDINE HYDROCHLORIDE
     Indication: DYSPEPSIA
  2. ZANTAC 75 [Suspect]
     Active Substance: RANITIDINE HYDROCHLORIDE
     Indication: GASTROOESOPHAGEAL REFLUX DISEASE
     Dosage: 150 MG, QD
     Dates: start: 1990

REACTIONS (18)
  - Infection susceptibility increased [Unknown]
  - Fear [Unknown]
  - General physical health deterioration [Unknown]
  - Disturbance in attention [Unknown]
  - Sleep disorder [Unknown]
  - Self esteem decreased [Unknown]
  - Illness [Unknown]
  - Asthenia [Unknown]
  - Discomfort [Unknown]
  - Bladder cancer [Unknown]
  - Physical disability [Unknown]
  - Loss of personal independence in daily activities [Unknown]
  - Emotional distress [Unknown]
  - Depression [Unknown]
  - Carcinogenicity [Unknown]
  - Pain [Unknown]
  - Anxiety [Unknown]
  - Injury [Unknown]

NARRATIVE: CASE EVENT DATE: 2020
